FAERS Safety Report 4613618-8 (Version None)
Quarter: 2005Q1

REPORT INFORMATION
  Report Type: 
  Country: None (occurrence: None)
  Receive Date: 20050318
  Receipt Date: 20050318
  Transmission Date: 20050727
  Serious: Yes (Hospitalization)
  Sender: FDA-Public Use
  Company Number: None

PATIENT
  Sex: Female
  Weight: 53.9 kg

DRUGS (1)
  1. ENOXAPARIN SODIUM [Suspect]
     Indication: PORTAL VEIN THROMBOSIS
     Dosage: 50MG  Q 12 HRS
     Dates: start: 20041216, end: 20041223

REACTIONS (2)
  - PLATELET COUNT DECREASED [None]
  - UNEVALUABLE EVENT [None]
